FAERS Safety Report 20108333 (Version 2)
Quarter: 2022Q1

REPORT INFORMATION
  Report Type: Spontaneous
  Country: US (occurrence: US)
  Receive Date: 20211124
  Receipt Date: 20220224
  Transmission Date: 20220423
  Serious: No
  Sender: FDA-Public Use
  Company Number: US-BRISTOL-MYERS SQUIBB COMPANY-BMS-2021-124571

PATIENT
  Age: 72 Year
  Sex: Male

DRUGS (1)
  1. YERVOY [Suspect]
     Active Substance: IPILIMUMAB
     Indication: Malignant melanoma
     Dosage: UNK
     Route: 042

REACTIONS (8)
  - Fatigue [Unknown]
  - Alopecia [Unknown]
  - Pollakiuria [Unknown]
  - Balance disorder [Unknown]
  - Pruritus [Unknown]
  - Joint swelling [Unknown]
  - Chest pain [Unknown]
  - Memory impairment [Unknown]
